FAERS Safety Report 9235768 (Version 1)
Quarter: 2013Q2

REPORT INFORMATION
  Report Type: Spontaneous
  Country: US (occurrence: None)
  Receive Date: 20130416
  Receipt Date: 20130416
  Transmission Date: 20140414
  Serious: Yes (Life-Threatening, Hospitalization, Disabling)
  Sender: FDA-Public Use
  Company Number: None

PATIENT
  Age: 79 Year
  Sex: Female
  Weight: 58.97 kg

DRUGS (1)
  1. ENABLEX [Suspect]
     Indication: BLADDER SPASM
     Dosage: ONE DOSE ONE TIME PO
     Route: 048
     Dates: start: 20130403, end: 20130404

REACTIONS (5)
  - Unresponsive to stimuli [None]
  - Balance disorder [None]
  - Dizziness [None]
  - Dysstasia [None]
  - Gait disturbance [None]
